FAERS Safety Report 8122876-7 (Version None)
Quarter: 2011Q4

REPORT INFORMATION
  Report Type: 
  Country: None (occurrence: None)
  Receive Date: 20111227
  Receipt Date: 20111109
  Transmission Date: 20120403
  Serious: No
  Sender: FDA-Public Use
  Company Number: PHEH2011US009325

PATIENT
  Age: 33 Year
  Sex: Female
  Weight: 51.7 kg

DRUGS (4)
  1. ZANAFLEX [Concomitant]
  2. TRAMADOL HYDROCHLORIDE [Concomitant]
  3. GILENYA [Suspect]
     Dosage: 0.5 MG, QD, ORAL
     Route: 048
  4. ALPRAZOLAM [Concomitant]

REACTIONS (1)
  - FATIGUE [None]
